FAERS Safety Report 5473563-5 (Version None)
Quarter: 2007Q3

REPORT INFORMATION
  Report Type: 
  Country: None (occurrence: None)
  Receive Date: 20070831
  Receipt Date: 20070601
  Transmission Date: 20080115
  Serious: No
  Sender: FDA-Public Use
  Company Number: 242380

PATIENT
  Age: 76 Year
  Sex: Female

DRUGS (3)
  1. LUCENTIS [Suspect]
     Indication: MACULAR DEGENERATION
     Dosage: INTRAVITREAL
     Route: 050
     Dates: start: 20070331
  2. ENALAPRIL MALEATE [Concomitant]
  3. XANAX [Concomitant]

REACTIONS (2)
  - PHOTOSENSITIVITY REACTION [None]
  - RHINORRHOEA [None]
